FAERS Safety Report 23446665 (Version 3)
Quarter: 2024Q1

REPORT INFORMATION
  Report Type: Spontaneous
  Country: US (occurrence: US)
  Receive Date: 20240126
  Receipt Date: 20240213
  Transmission Date: 20240410
  Serious: Yes (Other)
  Sender: FDA-Public Use
  Company Number: US-PFIZER INC-PV202400010554

PATIENT
  Age: 89 Year
  Sex: Female

DRUGS (1)
  1. IBRANCE [Suspect]
     Active Substance: PALBOCICLIB
     Dosage: 125 MG
     Dates: end: 20240128

REACTIONS (7)
  - Full blood count abnormal [Unknown]
  - Fatigue [Unknown]
  - Alopecia [Unknown]
  - Dyspepsia [Unknown]
  - Asthenia [Unknown]
  - Diarrhoea [Unknown]
  - Epistaxis [Unknown]
